FAERS Safety Report 12527656 (Version 2)
Quarter: 2016Q3

REPORT INFORMATION
  Report Type: Spontaneous
  Country: JP (occurrence: JP)
  Receive Date: 20160705
  Receipt Date: 20160916
  Transmission Date: 20161109
  Serious: Yes (Death)
  Sender: FDA-Public Use
  Company Number: JP-PFIZER INC-2016319189

PATIENT
  Age: 16 Year
  Sex: Male

DRUGS (9)
  1. MICAFUNGIN [Concomitant]
     Active Substance: MICAFUNGIN
  2. CIPROFLOXACIN. [Concomitant]
     Active Substance: CIPROFLOXACIN
     Route: 041
  3. PREDNISOLONE. [Concomitant]
     Active Substance: PREDNISOLONE
     Route: 048
  4. VANCOMYCIN [Concomitant]
     Active Substance: VANCOMYCIN
     Dosage: UNK
     Route: 042
  5. VFEND [Suspect]
     Active Substance: VORICONAZOLE
     Indication: TRICHOSPORON INFECTION
     Dosage: UNK
  6. ZYVOX [Suspect]
     Active Substance: LINEZOLID
     Indication: STAPHYLOCOCCAL INFECTION
     Dosage: UNK
     Route: 042
  7. AMBISOME [Concomitant]
     Active Substance: AMPHOTERICIN B
     Route: 042
  8. MEROPENEM. [Concomitant]
     Active Substance: MEROPENEM
     Dosage: UNK
     Route: 042
  9. PRODIF 100 [Suspect]
     Active Substance: FOSFLUCONAZOLE
     Indication: TRICHOSPORON INFECTION
     Dosage: UNK
     Route: 041

REACTIONS (2)
  - Product use issue [Unknown]
  - Death [Fatal]
